FAERS Safety Report 25550382 (Version 2)
Quarter: 2025Q3

REPORT INFORMATION
  Report Type: Report from Study
  Country: US (occurrence: US)
  Receive Date: 20250714
  Receipt Date: 20250721
  Transmission Date: 20251021
  Serious: No
  Sender: BRISTOL-MYERS SQUIBB COMPANY
  Company Number: US-BRISTOL-MYERS SQUIBB COMPANY-2025-098722

PATIENT
  Age: 61 Year
  Sex: Male

DRUGS (2)
  1. ORENCIA [Suspect]
     Active Substance: ABATACEPT
     Indication: Product used for unknown indication
     Route: 058
  2. ORENCIA [Suspect]
     Active Substance: ABATACEPT

REACTIONS (16)
  - Product storage error [Unknown]
  - Device operational issue [Unknown]
  - Incorrect dose administered [Unknown]
  - Musculoskeletal stiffness [Unknown]
  - Fatigue [Unknown]
  - Pain [Unknown]
  - Device defective [Unknown]
  - Dyslexia [Unknown]
  - Mood disorder due to a general medical condition [Unknown]
  - Memory impairment [Unknown]
  - Off label use [Unknown]
  - Discomfort [Unknown]
  - Product dose omission issue [Unknown]
  - Dizziness [Unknown]
  - Frustration tolerance decreased [Unknown]
  - Panic reaction [Unknown]

NARRATIVE: CASE EVENT DATE: 20250710
